FAERS Safety Report 9262792 (Version 1)
Quarter: 2013Q2

REPORT INFORMATION
  Report Type: Spontaneous
  Country: US (occurrence: None)
  Receive Date: 20130426
  Receipt Date: 20130426
  Transmission Date: 20140414
  Serious: Yes (Life-Threatening)
  Sender: FDA-Public Use
  Company Number: None

PATIENT
  Age: 56 Year
  Sex: Male
  Weight: 115.8 kg

DRUGS (1)
  1. MORPHINE [Suspect]
     Route: 048
     Dates: start: 20121212, end: 20130109

REACTIONS (2)
  - Depression [None]
  - Suicidal ideation [None]
